FAERS Safety Report 21663301 (Version 1)
Quarter: 2022Q4

REPORT INFORMATION
  Report Type: Spontaneous
  Country: US (occurrence: None)
  Receive Date: 20221129
  Receipt Date: 20221129
  Transmission Date: 20230113
  Serious: Yes (Other)
  Sender: FDA-Public Use
  Company Number: None

PATIENT
  Age: 71 Year
  Sex: Male
  Weight: 83.25 kg

DRUGS (1)
  1. COPIKTRA [Suspect]
     Active Substance: DUVELISIB
     Indication: Non-Hodgkin^s lymphoma
     Dosage: FREQUENCY : TWICE A DAY;?
     Route: 048
     Dates: start: 20221107, end: 20221121

REACTIONS (8)
  - Pyrexia [None]
  - Chills [None]
  - Dizziness [None]
  - Vomiting [None]
  - Cough [None]
  - Hyperhidrosis [None]
  - Rash [None]
  - Malaise [None]

NARRATIVE: CASE EVENT DATE: 20221122
